FAERS Safety Report 15082356 (Version 1)
Quarter: 2018Q2

REPORT INFORMATION
  Report Type: Spontaneous
  Country: US (occurrence: US)
  Receive Date: 20180628
  Receipt Date: 20180628
  Transmission Date: 20180711
  Serious: Yes (Other)
  Sender: FDA-Public Use
  Company Number: US-SA-2017SA255401

PATIENT
  Age: 52 Year
  Sex: Female
  Weight: 86 kg

DRUGS (15)
  1. MELOXICAM. [Concomitant]
     Active Substance: MELOXICAM
  2. SYNTHROID [Concomitant]
     Active Substance: LEVOTHYROXINE SODIUM
  3. LEVOTHYROXINE. [Concomitant]
     Active Substance: LEVOTHYROXINE
     Dosage: UNK UNK,UNK
     Route: 065
     Dates: start: 20090101
  4. HERCEPTIN [Concomitant]
     Active Substance: TRASTUZUMAB
  5. ALENDRONATE [Concomitant]
     Active Substance: ALENDRONATE SODIUM
  6. TRIAMCINOLONE [Concomitant]
     Active Substance: TRIAMCINOLONE
  7. PARAPLATIN [Concomitant]
     Active Substance: CARBOPLATIN
  8. METOPROLOL. [Concomitant]
     Active Substance: METOPROLOL
  9. TAXOTERE [Suspect]
     Active Substance: DOCETAXEL
     Dosage: 130 MG,Q3W
     Route: 042
     Dates: start: 20100114, end: 20100114
  10. PROTONIX [OMEPRAZOLE] [Concomitant]
     Dosage: UNK UNK,UNK
     Route: 065
     Dates: start: 20090101
  11. TRAMADOL. [Concomitant]
     Active Substance: TRAMADOL
  12. TAXOTERE [Suspect]
     Active Substance: DOCETAXEL
     Indication: BREAST CANCER
     Dosage: 130 MG,Q3W
     Route: 042
     Dates: start: 20090818, end: 20090818
  13. NIFEDICAL XL [Concomitant]
     Active Substance: NIFEDIPINE
  14. LEVOXYL [Concomitant]
     Active Substance: LEVOTHYROXINE SODIUM
     Dosage: UNK UNK,UNK
     Route: 065
     Dates: start: 20090101
  15. CARBOPLATIN. [Concomitant]
     Active Substance: CARBOPLATIN

REACTIONS (1)
  - Alopecia [Not Recovered/Not Resolved]

NARRATIVE: CASE EVENT DATE: 20100603
